FAERS Safety Report 18833695 (Version 1)
Quarter: 2021Q1

REPORT INFORMATION
  Report Type: Spontaneous
  Country: US (occurrence: US)
  Receive Date: 20210203
  Receipt Date: 20210203
  Transmission Date: 20210419
  Serious: No
  Sender: FDA-Public Use
  Company Number: US-ALLERGAN-2005293US

PATIENT
  Sex: Female

DRUGS (4)
  1. BOTOX COSMETIC [Suspect]
     Active Substance: ONABOTULINUMTOXINA
     Indication: SPONDYLOLYSIS
     Dosage: UNK, SINGLE
     Dates: start: 20200123, end: 20200123
  2. ANESTHETIC [Concomitant]
     Active Substance: BENZOCAINE\LIDOCAINE HYDROCHLORIDE
     Indication: SPONDYLOLYSIS
  3. BOTOX COSMETIC [Suspect]
     Active Substance: ONABOTULINUMTOXINA
     Dosage: UNK, SINGLE
     Dates: start: 20200120, end: 20200120
  4. NSAIDS [Concomitant]
     Active Substance: UNSPECIFIED INGREDIENT
     Indication: SPONDYLOLYSIS

REACTIONS (2)
  - Off label use [Unknown]
  - Neck pain [Unknown]

NARRATIVE: CASE EVENT DATE: 20200123
